FAERS Safety Report 9562545 (Version 1)
Quarter: 2013Q3

REPORT INFORMATION
  Report Type: Spontaneous
  Country: US (occurrence: US)
  Receive Date: 20130927
  Receipt Date: 20130927
  Transmission Date: 20140515
  Serious: Yes (Hospitalization)
  Sender: FDA-Public Use
  Company Number: US-ROXANE LABORATORIES, INC.-2013-RO-01576RO

PATIENT
  Age: 55 Year
  Sex: Female

DRUGS (2)
  1. PREDNISONE [Suspect]
     Indication: VASCULITIS GASTROINTESTINAL
  2. COPAXONE [Suspect]
     Indication: MULTIPLE SCLEROSIS
     Dates: start: 20121012

REACTIONS (5)
  - Vasculitis gastrointestinal [Not Recovered/Not Resolved]
  - Somnolence [Recovered/Resolved]
  - Shock [Recovered/Resolved]
  - Hormone level abnormal [Recovered/Resolved]
  - Renal failure [Recovered/Resolved]
